FAERS Safety Report 15761356 (Version 1)
Quarter: 2018Q4

REPORT INFORMATION
  Report Type: Spontaneous
  Country: US (occurrence: US)
  Receive Date: 20181206
  Receipt Date: 20181206
  Transmission Date: 20190205
  Serious: No
  Sender: FDA-Public Use
  Company Number: None

PATIENT
  Age: 79 Year
  Sex: Female

DRUGS (1)
  1. ERIVEDGE [Suspect]
     Active Substance: VISMODEGIB
     Dosage: ?          OTHER DOSE:1 CAPSUL;?
     Route: 048
     Dates: start: 201809

REACTIONS (2)
  - Insomnia [None]
  - Alopecia [None]
